FAERS Safety Report 7530857-7 (Version None)
Quarter: 2011Q2

REPORT INFORMATION
  Report Type: 
  Country: None (occurrence: None)
  Receive Date: 20110608
  Receipt Date: 20110531
  Transmission Date: 20111010
  Serious: Yes (Other)
  Sender: FDA-Public Use
  Company Number: US-BRISTOL-MYERS SQUIBB COMPANY-15792948

PATIENT
  Age: 16 Year
  Sex: Male

DRUGS (6)
  1. DEXAMETHASONE [Suspect]
     Indication: NAUSEA
     Dosage: ON DAY 1-7.
  2. PROMETHAZINE [Suspect]
     Indication: NAUSEA
     Dosage: EVERY 8HR PRN ON DAYS 1-5.
  3. BLEOMYCIN SULFATE [Suspect]
     Indication: TESTICULAR GERM CELL CANCER
     Dosage: DAYS 1, 5 AND 15.
  4. ONDANSETRON [Suspect]
     Indication: NAUSEA
  5. CISPLATIN [Suspect]
     Indication: TESTICULAR GERM CELL CANCER
     Dosage: ON DAYS 1-5.
  6. ETOPOSIDE [Suspect]
     Indication: TESTICULAR GERM CELL CANCER
     Dosage: ON DAY 1-5.

REACTIONS (1)
  - PSYCHOTIC DISORDER [None]
